FAERS Safety Report 18006054 (Version 1)
Quarter: 2020Q3

REPORT INFORMATION
  Report Type: Spontaneous
  Country: US (occurrence: US)
  Receive Date: 20200710
  Receipt Date: 20200710
  Transmission Date: 20201103
  Serious: Yes (Life-Threatening, Other)
  Sender: FDA-Public Use
  Company Number: US-PFIZER INC-2020264105

PATIENT
  Age: 41 Year
  Sex: Female

DRUGS (9)
  1. SCOPOLAMINE HYDROBROMIDE. [Concomitant]
     Active Substance: SCOPOLAMINE HYDROBROMIDE
     Indication: PREMEDICATION
     Dosage: 0.4 MG
     Route: 030
  2. THIOPENTAL SODIUM. [Concomitant]
     Active Substance: THIOPENTAL SODIUM
     Indication: GENERAL ANAESTHESIA
     Dosage: 300 MG
     Route: 042
  3. MORPHINE SULFATE. [Concomitant]
     Active Substance: MORPHINE SULFATE
     Indication: PREMEDICATION
     Dosage: 10 MG
     Route: 030
  4. HALOTHANE. [Concomitant]
     Active Substance: HALOTHANE
     Indication: GENERAL ANAESTHESIA
     Dosage: UNK
  5. OXYGEN. [Concomitant]
     Active Substance: OXYGEN
     Dosage: UNK
  6. RINGER^S SOLUTION [CALCIUM CHLORIDE;POTASSIUM CHLORIDE;SODIUM CHLORIDE [Concomitant]
     Indication: DEHYDRATION
     Dosage: 500 ML
     Route: 042
  7. EPINEPHRINE. [Suspect]
     Active Substance: EPINEPHRINE
     Indication: ANAESTHESIA
     Dosage: 10 ML (30 ML. CONTAINER OF A 1:1000 DILUTION OF EPINEPHRINE AND THEN DILUTED FURTHER TO 1 : 2000)
     Route: 058
  8. ATROPINE SULFATE. [Concomitant]
     Active Substance: ATROPINE SULFATE
     Indication: HYPOTENSION
     Dosage: 0.4 MG
     Route: 042
  9. RINGER^S SOLUTION [CALCIUM CHLORIDE;POTASSIUM CHLORIDE;SODIUM CHLORIDE [Concomitant]
     Indication: HYPOTENSION
     Dosage: UNK
     Route: 042

REACTIONS (5)
  - Pulmonary oedema [Unknown]
  - Blood pressure increased [Recovered/Resolved]
  - Hypotension [Recovered/Resolved]
  - Accidental overdose [Unknown]
  - Arrhythmia [Unknown]
